FAERS Safety Report 7937561-1 (Version None)
Quarter: 2011Q4

REPORT INFORMATION
  Report Type: 
  Country: None (occurrence: None)
  Receive Date: 20111123
  Receipt Date: 20111121
  Transmission Date: 20120403
  Serious: Yes (Death, Life-Threatening)
  Sender: FDA-Public Use
  Company Number: US-ELI_LILLY_AND_COMPANY-US201110005161

PATIENT
  Age: 80 Year
  Sex: Male
  Weight: 77.098 kg

DRUGS (1)
  1. EFFIENT [Suspect]
     Dosage: 5 MG, QD

REACTIONS (2)
  - MYELODYSPLASTIC SYNDROME [None]
  - SEPSIS [None]
